FAERS Safety Report 13598370 (Version 1)
Quarter: 2017Q2

REPORT INFORMATION
  Report Type: Spontaneous
  Country: US (occurrence: US)
  Receive Date: 20170531
  Receipt Date: 20170531
  Transmission Date: 20170830
  Serious: No
  Sender: FDA-Public Use
  Company Number: US-TARO-2016TAR00975

PATIENT
  Age: 88 Year
  Sex: Female
  Weight: 65.76 kg

DRUGS (3)
  1. ANORO INHALER [Concomitant]
  2. UNSPECIFIED VITAMINS [Concomitant]
     Active Substance: VITAMINS
  3. IMIQUIMOD CREAM 5% [Suspect]
     Active Substance: IMIQUIMOD
     Indication: PRECANCEROUS SKIN LESION
     Dosage: UNK, 1X/DAY
     Route: 061
     Dates: start: 20160923, end: 201610

REACTIONS (4)
  - Feeling cold [Recovered/Resolved]
  - Pain in extremity [Recovered/Resolved]
  - Pain [Recovered/Resolved]
  - Headache [Recovered/Resolved]

NARRATIVE: CASE EVENT DATE: 201610
